FAERS Safety Report 7654828-5 (Version None)
Quarter: 2011Q3

REPORT INFORMATION
  Report Type: 
  Country: None (occurrence: None)
  Receive Date: 20110728
  Receipt Date: 20110713
  Transmission Date: 20111222
  Serious: Yes (Hospitalization, Other)
  Sender: FDA-Public Use
  Company Number: 2011MA009047

PATIENT
  Sex: Female

DRUGS (3)
  1. CENTRUM (CENTRUM) [Suspect]
  2. COD LIVER OIL [Suspect]
  3. ACYCLOVIR [Suspect]
     Indication: EPSTEIN-BARR VIRUS INFECTION

REACTIONS (1)
  - CONVULSION [None]
